FAERS Safety Report 6628310-8 (Version None)
Quarter: 2010Q1

REPORT INFORMATION
  Report Type: 
  Country: None (occurrence: None)
  Receive Date: 20100311
  Receipt Date: 20100303
  Transmission Date: 20100710
  Serious: Yes (Death, Hospitalization)
  Sender: FDA-Public Use
  Company Number: JP-ROCHE-680550

PATIENT
  Sex: Male
  Weight: 51 kg

DRUGS (22)
  1. AVASTIN [Suspect]
     Indication: COLORECTAL CANCER
     Route: 041
     Dates: start: 20071112, end: 20071226
  2. AVASTIN [Suspect]
     Route: 041
     Dates: start: 20081117, end: 20081117
  3. AVASTIN [Suspect]
     Route: 041
     Dates: start: 20090522, end: 20090522
  4. AVASTIN [Suspect]
     Route: 041
     Dates: start: 20090617, end: 20090617
  5. CRAVIT [Suspect]
     Indication: LUNG INFECTION
     Route: 048
     Dates: start: 20090627, end: 20090705
  6. ELPLAT [Suspect]
     Indication: COLON CANCER METASTATIC
     Route: 041
     Dates: start: 20071112, end: 20071226
  7. ELPLAT [Suspect]
     Route: 041
     Dates: start: 20080918
  8. ELPLAT [Suspect]
     Route: 041
     Dates: start: 20090617, end: 20090617
  9. ISOVORIN [Suspect]
     Indication: COLON CANCER METASTATIC
     Route: 041
     Dates: start: 20071112, end: 20071226
  10. 5-FU [Suspect]
     Indication: COLON CANCER METASTATIC
     Route: 041
     Dates: start: 20071112, end: 20071226
  11. 5-FU [Suspect]
     Route: 041
     Dates: start: 20071112, end: 20071201
  12. 5-FU [Concomitant]
     Route: 041
     Dates: start: 20081117, end: 20081117
  13. 5-FU [Concomitant]
     Route: 041
     Dates: start: 20081118, end: 20081118
  14. 5-FU [Concomitant]
     Route: 041
     Dates: start: 20090522, end: 20090522
  15. 5-FU [Concomitant]
     Route: 041
     Dates: start: 20090523, end: 20090523
  16. LEVOFOLINATE [Concomitant]
     Route: 041
     Dates: start: 20081117, end: 20081117
  17. LEVOFOLINATE [Concomitant]
     Route: 041
     Dates: start: 20090522, end: 20090522
  18. ELPLAT [Concomitant]
     Route: 041
     Dates: start: 20081117, end: 20081117
  19. ELPLAT [Concomitant]
     Route: 041
     Dates: start: 20090522, end: 20090522
  20. DECADRON PHOSPHATE [Concomitant]
     Route: 041
     Dates: start: 20081118, end: 20081118
  21. DECADRON PHOSPHATE [Concomitant]
     Route: 041
     Dates: start: 20090522, end: 20090522
  22. DECADRON [Concomitant]
     Route: 041

REACTIONS (6)
  - ANAPHYLACTOID REACTION [None]
  - DISEASE PROGRESSION [None]
  - GASTRIC ULCER HAEMORRHAGE [None]
  - GASTROINTESTINAL HAEMORRHAGE [None]
  - LUNG INFECTION [None]
  - STOMATITIS [None]
